FAERS Safety Report 19408126 (Version 2)
Quarter: 2025Q3

REPORT INFORMATION
  Report Type: Spontaneous
  Country: EU (occurrence: EU)
  Receive Date: 20210611
  Receipt Date: 20250717
  Transmission Date: 20251020
  Serious: Yes (Death, Hospitalization)
  Sender: MYLAN
  Company Number: None

PATIENT
  Age: 80 Year
  Sex: Male

DRUGS (80)
  1. NEURONTIN [Interacting]
     Active Substance: GABAPENTIN
     Indication: Pain in extremity
     Dates: start: 20210403, end: 20210406
  2. NEURONTIN [Interacting]
     Active Substance: GABAPENTIN
     Indication: Pain
     Route: 048
     Dates: start: 20210403, end: 20210406
  3. NEURONTIN [Interacting]
     Active Substance: GABAPENTIN
     Route: 048
     Dates: start: 20210403, end: 20210406
  4. NEURONTIN [Interacting]
     Active Substance: GABAPENTIN
     Dates: start: 20210403, end: 20210406
  5. ACETAMINOPHEN [Interacting]
     Active Substance: ACETAMINOPHEN
     Indication: Pain in extremity
     Dosage: 1 G EVERY 6 HOURS
     Dates: start: 20210330, end: 20210406
  6. ACETAMINOPHEN [Interacting]
     Active Substance: ACETAMINOPHEN
     Dosage: 1 G EVERY 6 HOURS
     Route: 048
     Dates: start: 20210330, end: 20210406
  7. ACETAMINOPHEN [Interacting]
     Active Substance: ACETAMINOPHEN
     Dosage: 1 G EVERY 6 HOURS
     Route: 048
     Dates: start: 20210330, end: 20210406
  8. ACETAMINOPHEN [Interacting]
     Active Substance: ACETAMINOPHEN
     Dosage: 1 G EVERY 6 HOURS
     Dates: start: 20210330, end: 20210406
  9. TRAMADOL HYDROCHLORIDE [Interacting]
     Active Substance: TRAMADOL HYDROCHLORIDE
     Indication: Pain in extremity
     Dosage: 100 MG, 2X/DAY
     Dates: start: 20210401, end: 20210402
  10. TRAMADOL HYDROCHLORIDE [Interacting]
     Active Substance: TRAMADOL HYDROCHLORIDE
     Dosage: 100 MG, 2X/DAY
     Dates: start: 20210401, end: 20210402
  11. TRAMADOL HYDROCHLORIDE [Interacting]
     Active Substance: TRAMADOL HYDROCHLORIDE
     Dosage: 100 MG, 2X/DAY
     Route: 048
     Dates: start: 20210401, end: 20210402
  12. TRAMADOL HYDROCHLORIDE [Interacting]
     Active Substance: TRAMADOL HYDROCHLORIDE
     Dosage: 100 MG, 2X/DAY
     Route: 048
     Dates: start: 20210401, end: 20210402
  13. TRAMADOL HYDROCHLORIDE [Interacting]
     Active Substance: TRAMADOL HYDROCHLORIDE
     Dosage: 175 MG, 2X/DAY
     Dates: start: 20210403, end: 20210403
  14. TRAMADOL HYDROCHLORIDE [Interacting]
     Active Substance: TRAMADOL HYDROCHLORIDE
     Dosage: 175 MG, 2X/DAY
     Dates: start: 20210403, end: 20210403
  15. TRAMADOL HYDROCHLORIDE [Interacting]
     Active Substance: TRAMADOL HYDROCHLORIDE
     Dosage: 175 MG, 2X/DAY
     Route: 048
     Dates: start: 20210403, end: 20210403
  16. TRAMADOL HYDROCHLORIDE [Interacting]
     Active Substance: TRAMADOL HYDROCHLORIDE
     Dosage: 175 MG, 2X/DAY
     Route: 048
     Dates: start: 20210403, end: 20210403
  17. TRAMADOL HYDROCHLORIDE [Interacting]
     Active Substance: TRAMADOL HYDROCHLORIDE
     Dosage: 150 MG, 2X/DAY
     Dates: start: 20210404, end: 20210406
  18. TRAMADOL HYDROCHLORIDE [Interacting]
     Active Substance: TRAMADOL HYDROCHLORIDE
     Dosage: 150 MG, 2X/DAY
     Route: 048
     Dates: start: 20210404, end: 20210406
  19. TRAMADOL HYDROCHLORIDE [Interacting]
     Active Substance: TRAMADOL HYDROCHLORIDE
     Dosage: 150 MG, 2X/DAY
     Dates: start: 20210404, end: 20210406
  20. TRAMADOL HYDROCHLORIDE [Interacting]
     Active Substance: TRAMADOL HYDROCHLORIDE
     Dosage: 150 MG, 2X/DAY
     Route: 048
     Dates: start: 20210404, end: 20210406
  21. COMIRNATY (TOZINAMERAN) [Interacting]
     Active Substance: TOZINAMERAN
     Indication: Immunisation
  22. COMIRNATY (TOZINAMERAN) [Interacting]
     Active Substance: TOZINAMERAN
     Route: 065
  23. COMIRNATY (TOZINAMERAN) [Interacting]
     Active Substance: TOZINAMERAN
     Route: 065
  24. COMIRNATY (TOZINAMERAN) [Interacting]
     Active Substance: TOZINAMERAN
  25. METHYLCOBALAMIN [Concomitant]
     Active Substance: METHYLCOBALAMIN
     Indication: Product used for unknown indication
     Dosage: 100 UG, 1X/DAY
  26. METHYLCOBALAMIN [Concomitant]
     Active Substance: METHYLCOBALAMIN
     Dosage: 100 UG, 1X/DAY
     Route: 065
  27. METHYLCOBALAMIN [Concomitant]
     Active Substance: METHYLCOBALAMIN
     Dosage: 100 UG, 1X/DAY
     Route: 065
  28. METHYLCOBALAMIN [Concomitant]
     Active Substance: METHYLCOBALAMIN
     Dosage: 100 UG, 1X/DAY
  29. Paralgin forte [Concomitant]
     Indication: Pain in extremity
     Dates: start: 20210305, end: 20210404
  30. Paralgin forte [Concomitant]
     Route: 065
     Dates: start: 20210305, end: 20210404
  31. Paralgin forte [Concomitant]
     Route: 065
     Dates: start: 20210305, end: 20210404
  32. Paralgin forte [Concomitant]
     Dates: start: 20210305, end: 20210404
  33. PLAVIX [Concomitant]
     Active Substance: CLOPIDOGREL BISULFATE
     Indication: Product used for unknown indication
     Dosage: 75 MG, 1X/DAY
  34. PLAVIX [Concomitant]
     Active Substance: CLOPIDOGREL BISULFATE
     Dosage: 75 MG, 1X/DAY
     Route: 065
  35. PLAVIX [Concomitant]
     Active Substance: CLOPIDOGREL BISULFATE
     Dosage: 75 MG, 1X/DAY
     Route: 065
  36. PLAVIX [Concomitant]
     Active Substance: CLOPIDOGREL BISULFATE
     Dosage: 75 MG, 1X/DAY
  37. FUROSEMIDE [Concomitant]
     Active Substance: FUROSEMIDE
     Indication: Product used for unknown indication
     Dosage: 40 MG, 1X/DAY
  38. FUROSEMIDE [Concomitant]
     Active Substance: FUROSEMIDE
     Dosage: 40 MG, 1X/DAY
     Route: 065
  39. FUROSEMIDE [Concomitant]
     Active Substance: FUROSEMIDE
     Dosage: 40 MG, 1X/DAY
     Route: 065
  40. FUROSEMIDE [Concomitant]
     Active Substance: FUROSEMIDE
     Dosage: 40 MG, 1X/DAY
  41. ALLOPURINOL [Concomitant]
     Active Substance: ALLOPURINOL
     Indication: Product used for unknown indication
     Dosage: 300 MG, 1X/DAY
  42. ALLOPURINOL [Concomitant]
     Active Substance: ALLOPURINOL
     Dosage: 300 MG, 1X/DAY
     Route: 065
  43. ALLOPURINOL [Concomitant]
     Active Substance: ALLOPURINOL
     Dosage: 300 MG, 1X/DAY
     Route: 065
  44. ALLOPURINOL [Concomitant]
     Active Substance: ALLOPURINOL
     Dosage: 300 MG, 1X/DAY
  45. MOXONIDINE [Concomitant]
     Active Substance: MOXONIDINE
     Indication: Hypertension
     Dosage: 0.2 MG, 1X/DAY
  46. MOXONIDINE [Concomitant]
     Active Substance: MOXONIDINE
     Dosage: 0.2 MG, 1X/DAY
     Route: 065
  47. MOXONIDINE [Concomitant]
     Active Substance: MOXONIDINE
     Dosage: 0.2 MG, 1X/DAY
     Route: 065
  48. MOXONIDINE [Concomitant]
     Active Substance: MOXONIDINE
     Dosage: 0.2 MG, 1X/DAY
  49. AMLODIPINE [Concomitant]
     Active Substance: AMLODIPINE BESYLATE
     Indication: Hypertension
     Dosage: 10 MG, 1X/DAY
  50. AMLODIPINE [Concomitant]
     Active Substance: AMLODIPINE BESYLATE
     Dosage: 10 MG, 1X/DAY
     Route: 048
  51. AMLODIPINE [Concomitant]
     Active Substance: AMLODIPINE BESYLATE
     Dosage: 10 MG, 1X/DAY
     Route: 048
  52. AMLODIPINE [Concomitant]
     Active Substance: AMLODIPINE BESYLATE
     Dosage: 10 MG, 1X/DAY
  53. Dutasteride/tamsulosin orion [Concomitant]
     Indication: Product used for unknown indication
     Dosage: 1 DF, 1X/DAY
  54. Dutasteride/tamsulosin orion [Concomitant]
     Dosage: 1 DF, 1X/DAY
     Route: 065
  55. Dutasteride/tamsulosin orion [Concomitant]
     Dosage: 1 DF, 1X/DAY
     Route: 065
  56. Dutasteride/tamsulosin orion [Concomitant]
     Dosage: 1 DF, 1X/DAY
  57. AZITHROMYCIN ANHYDROUS [Concomitant]
     Active Substance: AZITHROMYCIN ANHYDROUS
     Indication: Infection
     Dosage: 500 MG, 1X/DAY
  58. AZITHROMYCIN ANHYDROUS [Concomitant]
     Active Substance: AZITHROMYCIN ANHYDROUS
     Dosage: 500 MG, 1X/DAY
     Route: 065
  59. AZITHROMYCIN ANHYDROUS [Concomitant]
     Active Substance: AZITHROMYCIN ANHYDROUS
     Dosage: 500 MG, 1X/DAY
     Route: 065
  60. AZITHROMYCIN ANHYDROUS [Concomitant]
     Active Substance: AZITHROMYCIN ANHYDROUS
     Dosage: 500 MG, 1X/DAY
  61. ENALAPRIL [Concomitant]
     Active Substance: ENALAPRIL
     Indication: Hypertension
     Dosage: 0.5 DF, 1X/DAY
  62. ENALAPRIL [Concomitant]
     Active Substance: ENALAPRIL
     Dosage: 0.5 DF, 1X/DAY
     Route: 048
  63. ENALAPRIL [Concomitant]
     Active Substance: ENALAPRIL
     Dosage: 0.5 DF, 1X/DAY
     Route: 048
  64. ENALAPRIL [Concomitant]
     Active Substance: ENALAPRIL
     Dosage: 0.5 DF, 1X/DAY
  65. CARVEDILOL [Concomitant]
     Active Substance: CARVEDILOL
     Indication: Product used for unknown indication
  66. CARVEDILOL [Concomitant]
     Active Substance: CARVEDILOL
     Route: 065
  67. CARVEDILOL [Concomitant]
     Active Substance: CARVEDILOL
     Route: 065
  68. CARVEDILOL [Concomitant]
     Active Substance: CARVEDILOL
  69. MIRABEGRON [Concomitant]
     Active Substance: MIRABEGRON
     Indication: Product used for unknown indication
     Dosage: 50 MG, 1X/DAY
  70. MIRABEGRON [Concomitant]
     Active Substance: MIRABEGRON
     Dosage: 50 MG, 1X/DAY
     Route: 065
  71. MIRABEGRON [Concomitant]
     Active Substance: MIRABEGRON
     Dosage: 50 MG, 1X/DAY
     Route: 065
  72. MIRABEGRON [Concomitant]
     Active Substance: MIRABEGRON
     Dosage: 50 MG, 1X/DAY
  73. BACTRIM [Concomitant]
     Active Substance: SULFAMETHOXAZOLE\TRIMETHOPRIM
     Indication: Infection
     Dosage: 2 DF EVERY 12 HOURS FOR 4 MONTHS
  74. BACTRIM [Concomitant]
     Active Substance: SULFAMETHOXAZOLE\TRIMETHOPRIM
     Dosage: 2 DF EVERY 12 HOURS FOR 4 MONTHS
     Route: 065
  75. BACTRIM [Concomitant]
     Active Substance: SULFAMETHOXAZOLE\TRIMETHOPRIM
     Dosage: 2 DF EVERY 12 HOURS FOR 4 MONTHS
     Route: 065
  76. BACTRIM [Concomitant]
     Active Substance: SULFAMETHOXAZOLE\TRIMETHOPRIM
     Dosage: 2 DF EVERY 12 HOURS FOR 4 MONTHS
  77. EZETIMIBE [Concomitant]
     Active Substance: EZETIMIBE
     Indication: Product used for unknown indication
  78. EZETIMIBE [Concomitant]
     Active Substance: EZETIMIBE
     Route: 065
  79. EZETIMIBE [Concomitant]
     Active Substance: EZETIMIBE
     Route: 065
  80. EZETIMIBE [Concomitant]
     Active Substance: EZETIMIBE

REACTIONS (11)
  - Drug interaction [Fatal]
  - Toxicity to various agents [Fatal]
  - Analgesic drug level increased [Fatal]
  - Cardiac arrest [Fatal]
  - Renal failure [Fatal]
  - Myopathy [Fatal]
  - Muscular weakness [Fatal]
  - Pain [Fatal]
  - Polyneuropathy [Fatal]
  - Spinal stenosis [Fatal]
  - Poisoning [Fatal]

NARRATIVE: CASE EVENT DATE: 20210328
